FAERS Safety Report 17863995 (Version 2)
Quarter: 2020Q2

REPORT INFORMATION
  Report Type: Spontaneous
  Country: CA (occurrence: CA)
  Receive Date: 20200605
  Receipt Date: 20200616
  Transmission Date: 20200714
  Serious: Yes (Disabling)
  Sender: FDA-Public Use
  Company Number: CA-ROCHE-2612026

PATIENT
  Sex: Female

DRUGS (4)
  1. AZITHROMYCIN ANHYDROUS. [Suspect]
     Active Substance: AZITHROMYCIN ANHYDROUS
     Indication: GRAFT VERSUS HOST DISEASE IN LUNG
     Route: 065
  2. MYCOPHENOLATE MOFETIL. [Suspect]
     Active Substance: MYCOPHENOLATE MOFETIL
     Indication: PRODUCT USED FOR UNKNOWN INDICATION
     Route: 048
  3. FLUTICASONE. [Suspect]
     Active Substance: FLUTICASONE
     Indication: GRAFT VERSUS HOST DISEASE IN LUNG
     Route: 065
  4. MONTELUKAST [Suspect]
     Active Substance: MONTELUKAST SODIUM
     Indication: GRAFT VERSUS HOST DISEASE IN LUNG
     Route: 065

REACTIONS (2)
  - Therapy non-responder [Not Recovered/Not Resolved]
  - Product use in unapproved indication [Unknown]
